FAERS Safety Report 17803048 (Version 1)
Quarter: 2020Q2

REPORT INFORMATION
  Report Type: Spontaneous
  Country: FR (occurrence: FR)
  Receive Date: 20200519
  Receipt Date: 20200519
  Transmission Date: 20200714
  Serious: Yes (Other)
  Sender: FDA-Public Use
  Company Number: FR-MYLANLABS-2020M1048123

PATIENT
  Age: 44 Year
  Sex: Male

DRUGS (1)
  1. PREDNISONE. [Suspect]
     Active Substance: PREDNISONE
     Indication: STILL^S DISEASE
     Dosage: 0.4 MG/KG
     Route: 065

REACTIONS (2)
  - Still^s disease [Unknown]
  - Haemophagocytic lymphohistiocytosis [Unknown]
